FAERS Safety Report 9618411 (Version 1)
Quarter: 2013Q4

REPORT INFORMATION
  Report Type: Report from Study
  Country: CA (occurrence: CA)
  Receive Date: 20131014
  Receipt Date: 20131014
  Transmission Date: 20140711
  Serious: No
  Sender: FDA-Public Use
  Company Number: CA-JNJFOC-20131003160

PATIENT
  Age: 49 Year
  Sex: Male
  Weight: 90 kg

DRUGS (1)
  1. REMICADE [Suspect]
     Indication: CROHN^S DISEASE
     Route: 042
     Dates: start: 201306

REACTIONS (3)
  - Diarrhoea [Not Recovered/Not Resolved]
  - Wound secretion [Not Recovered/Not Resolved]
  - Fatigue [Not Recovered/Not Resolved]
